FAERS Safety Report 6382241-X (Version None)
Quarter: 2009Q3

REPORT INFORMATION
  Report Type: 
  Country: None (occurrence: None)
  Receive Date: 20090928
  Receipt Date: 20090928
  Transmission Date: 20100115
  Serious: Yes (Other)
  Sender: FDA-Public Use
  Company Number: None

PATIENT
  Sex: Female
  Weight: 31.7518 kg

DRUGS (3)
  1. PROAIR HFA [Suspect]
     Indication: ASTHMA
     Dosage: 2 PUFFS VID ORAL
     Route: 048
  2. PROVENTIL [Suspect]
  3. VENTOLIN [Suspect]

REACTIONS (4)
  - DEVICE FAILURE [None]
  - DEVICE INEFFECTIVE [None]
  - DEVICE OCCLUSION [None]
  - PRODUCT SUBSTITUTION ISSUE [None]
